FAERS Safety Report 5285144-7 (Version None)
Quarter: 2007Q1

REPORT INFORMATION
  Report Type: 
  Country: None (occurrence: None)
  Receive Date: 20070328
  Receipt Date: 20070313
  Transmission Date: 20070707
  Serious: Yes (Death)
  Sender: FDA-Public Use
  Company Number: TNZMA200700033

PATIENT
  Age: 70 Year
  Sex: Female
  Weight: 60 kg

DRUGS (1)
  1. INNOHEP [Suspect]
     Dosage: 1000 IU, SUBCUTANEOUS
     Route: 058

REACTIONS (1)
  - PULMONARY EMBOLISM [None]
